FAERS Safety Report 22132368 (Version 1)
Quarter: 2023Q1

REPORT INFORMATION
  Report Type: Spontaneous
  Country: CN (occurrence: CN)
  Receive Date: 20230323
  Receipt Date: 20230323
  Transmission Date: 20230417
  Serious: Yes (Hospitalization, Other)
  Sender: FDA-Public Use
  Company Number: CN-GLAXOSMITHKLINE-CNCH2023HLN012285

PATIENT
  Age: 22 Year
  Sex: Male
  Weight: 90 kg

DRUGS (3)
  1. DICLOFENAC SODIUM [Suspect]
     Active Substance: DICLOFENAC SODIUM
     Indication: Pain
     Dosage: 1 DOSAGE FORM, QD
     Route: 065
  2. IBUPROFEN [Suspect]
     Active Substance: IBUPROFEN
     Indication: Pyrexia
     Dosage: UNK
     Route: 065
  3. ALCOHOL [Suspect]
     Active Substance: ALCOHOL
     Indication: Product used for unknown indication
     Dosage: UNK, DRINKING 50-600 ML OF BEER OR HARD LIQUOR (WITH AN ALCOHOL LEVEL OF 58) PER DAY FOR TWO YEARS
     Route: 065

REACTIONS (46)
  - Pyrexia [Recovered/Resolved]
  - Purpura fulminans [Recovered/Resolved]
  - Thrombosis [Recovered/Resolved]
  - Pericardial effusion [Recovered/Resolved]
  - Intracranial infection [Recovered/Resolved]
  - Pneumonia [Recovered/Resolved]
  - Haematochezia [Recovered/Resolved]
  - Cerebral infarction [Recovered/Resolved]
  - Pulmonary embolism [Recovered/Resolved]
  - Gastrointestinal haemorrhage [Recovered/Resolved]
  - Liver injury [Recovered/Resolved]
  - Respiratory failure [Recovered/Resolved]
  - Haematemesis [Recovered/Resolved]
  - Multiple organ dysfunction syndrome [Recovered/Resolved]
  - Hepatic vein thrombosis [Recovered/Resolved]
  - Disseminated intravascular coagulation [Recovered/Resolved]
  - Hypokalaemia [Recovered/Resolved]
  - Seizure [Recovered/Resolved]
  - Cellulitis [Recovered/Resolved]
  - Sepsis [Recovered/Resolved]
  - Portal vein thrombosis [Recovered/Resolved]
  - Splenic vein thrombosis [Recovered/Resolved]
  - Mesenteric vein thrombosis [Recovered/Resolved]
  - Pneumonia [Recovered/Resolved]
  - Erythema [Recovered/Resolved]
  - Eschar [Recovered/Resolved]
  - Skin lesion [Recovered/Resolved]
  - Swelling [Recovered/Resolved]
  - Skin mass [Recovered/Resolved]
  - Pleurisy [Recovered/Resolved]
  - Pain of skin [Recovered/Resolved]
  - Back pain [Recovered/Resolved]
  - Headache [Recovered/Resolved]
  - Vertigo [Recovered/Resolved]
  - Cough [Recovered/Resolved]
  - Diarrhoea [Recovered/Resolved]
  - Abdominal pain [Recovered/Resolved]
  - Dyspnoea [Recovered/Resolved]
  - Irritability [Recovered/Resolved]
  - Dyspnoea [Recovered/Resolved]
  - Hyperchloraemia [Recovered/Resolved]
  - Hypernatraemia [Recovered/Resolved]
  - Metabolic acidosis [Recovered/Resolved]
  - Proteinuria [Recovered/Resolved]
  - Palpitations [Recovered/Resolved]
  - Oral candidiasis [Recovered/Resolved]
